FAERS Safety Report 18626500 (Version 1)
Quarter: 2020Q4

REPORT INFORMATION
  Report Type: Other
  Country: GB (occurrence: GB)
  Receive Date: 20201217
  Receipt Date: 20201217
  Transmission Date: 20210114
  Serious: Yes (Hospitalization, Other)
  Sender: FDA-Public Use
  Company Number: GB-AUROBINDO-AUR-APL-2013-10236

PATIENT
  Age: 62 Year
  Sex: Female

DRUGS (7)
  1. DULOXETINE. [Concomitant]
     Active Substance: DULOXETINE
     Indication: PRODUCT USED FOR UNKNOWN INDICATION
     Dosage: UNK
  2. FUROSEMIDE. [Concomitant]
     Active Substance: FUROSEMIDE
     Indication: PRODUCT USED FOR UNKNOWN INDICATION
     Dosage: UNK UNK,UNK,,40 MG UNIT DOSE
     Route: 065
  3. DABIGATRAN [Concomitant]
     Active Substance: DABIGATRAN
     Indication: PRODUCT USED FOR UNKNOWN INDICATION
     Dosage: UNK
     Route: 065
  4. LIDOCAINE. [Concomitant]
     Active Substance: LIDOCAINE
     Indication: PRODUCT USED FOR UNKNOWN INDICATION
     Dosage: UNK UNK,UNK,
     Route: 065
  5. LYRICA [Interacting]
     Active Substance: PREGABALIN
     Dosage: 100 MG,ONCE A DAY,
     Route: 065
  6. PERINDOPRIL 2 MG TABLETS [Suspect]
     Active Substance: PERINDOPRIL
     Indication: PRODUCT USED FOR UNKNOWN INDICATION
     Dosage: UNK
     Route: 065
  7. LYRICA [Interacting]
     Active Substance: PREGABALIN
     Indication: NEURALGIA
     Dosage: 100 MG,TWO TIMES A DAY,
     Route: 065

REACTIONS (14)
  - Cardiac failure congestive [Unknown]
  - Atrial fibrillation [Unknown]
  - Asthenia [Unknown]
  - Visual acuity reduced [Unknown]
  - Skin irritation [Unknown]
  - Cardiomyopathy [Unknown]
  - Disturbance in attention [Unknown]
  - Drug ineffective [Unknown]
  - Nerve injury [Unknown]
  - Memory impairment [Unknown]
  - Skin sensitisation [Unknown]
  - Drug interaction [Unknown]
  - Depression [Unknown]
  - Cerebral disorder [Unknown]

NARRATIVE: CASE EVENT DATE: 2013
